FAERS Safety Report 13472448 (Version 1)
Quarter: 2017Q2

REPORT INFORMATION
  Report Type: Spontaneous
  Country: US (occurrence: US)
  Receive Date: 20170424
  Receipt Date: 20170424
  Transmission Date: 20170830
  Serious: No
  Sender: FDA-Public Use
  Company Number: None

PATIENT
  Age: 84 Year
  Sex: Female

DRUGS (4)
  1. DARAPRIM [Suspect]
     Active Substance: PYRIMETHAMINE
     Indication: TOXOPLASMOSIS
     Dosage: 4 TABLETS DAY1: 4 ALL TOGETHER BY MOUTH
     Route: 048
     Dates: start: 20170317, end: 20170317
  2. LEUCOVORIN. [Concomitant]
     Active Substance: LEUCOVORIN
  3. DARAPRIM [Suspect]
     Active Substance: PYRIMETHAMINE
     Indication: TOXOPLASMOSIS
     Dosage: 116 1 TAB QID. BY MOUTH
     Route: 048
     Dates: start: 20170318, end: 20170415
  4. SULFADIAZINE. [Concomitant]
     Active Substance: SULFADIAZINE

REACTIONS (2)
  - Vomiting [None]
  - Nausea [None]

NARRATIVE: CASE EVENT DATE: 20170318
